FAERS Safety Report 10234470 (Version 2)
Quarter: 2014Q2

REPORT INFORMATION
  Report Type: Spontaneous
  Country: BR (occurrence: BR)
  Receive Date: 20140613
  Receipt Date: 20140613
  Transmission Date: 20141212
  Serious: Yes (Other)
  Sender: FDA-Public Use
  Company Number: BR-AMGEN INC.-BRASP2013070624

PATIENT
  Age: 58 Year
  Sex: Female
  Weight: 62 kg

DRUGS (3)
  1. ENBREL [Suspect]
     Indication: RHEUMATOID ARTHRITIS
     Dosage: 50 MG, ONCE WEEKLY
     Route: 058
     Dates: start: 20130830
  2. GLUCOREUMIN [Concomitant]
     Dosage: STRENGTH 1.5 MG
  3. ARAVA [Concomitant]
     Dosage: UNK

REACTIONS (2)
  - Breast cancer [Unknown]
  - Mass [Not Recovered/Not Resolved]
